FAERS Safety Report 5795654-1 (Version None)
Quarter: 2008Q2

REPORT INFORMATION
  Report Type: 
  Country: None (occurrence: None)
  Receive Date: 20080630
  Receipt Date: 20080620
  Transmission Date: 20081010
  Serious: Yes (Other)
  Sender: FDA-Public Use
  Company Number: US-PFIZER INC-2008052651

PATIENT
  Sex: Female
  Weight: 90.4 kg

DRUGS (15)
  1. CHANTIX [Suspect]
     Indication: SMOKING CESSATION THERAPY
     Route: 048
     Dates: start: 20080401, end: 20080601
  2. VALSARTAN [Concomitant]
  3. TOPROL-XL [Concomitant]
  4. QUINAPRIL [Concomitant]
  5. NORCO [Concomitant]
  6. CALCIUM [Concomitant]
  7. VITAMIN B COMPLEX CAP [Concomitant]
  8. FOLIC ACID [Concomitant]
  9. NEXIUM [Concomitant]
  10. ALBUTEROL [Concomitant]
     Route: 055
  11. ADVAIR DISKUS 100/50 [Concomitant]
  12. FLONASE [Concomitant]
  13. SEROQUEL [Concomitant]
  14. GABAPENTIN [Concomitant]
  15. METFORMIN [Concomitant]

REACTIONS (2)
  - MUSCULOSKELETAL CHEST PAIN [None]
  - SUICIDAL IDEATION [None]
